FAERS Safety Report 14337947 (Version 1)
Quarter: 2017Q4

REPORT INFORMATION
  Report Type: Report from Study
  Country: US (occurrence: US)
  Receive Date: 20171229
  Receipt Date: 20171229
  Transmission Date: 20180321
  Serious: Yes (Death, Hospitalization)
  Sender: FDA-Public Use
  Company Number: US-UCBSA-2017027825

PATIENT
  Age: 61 Year
  Sex: Male

DRUGS (2)
  1. KEPPRA [Suspect]
     Active Substance: LEVETIRACETAM
     Indication: SEIZURE
     Dosage: 250MG 2TABS PER DAY
  2. LACOSAMIDE. [Suspect]
     Active Substance: LACOSAMIDE
     Indication: EPILEPSY
     Dosage: 150MG TWO TABS PER DAY

REACTIONS (3)
  - Death [Fatal]
  - Seizure [Unknown]
  - Obsessive thoughts [Unknown]

NARRATIVE: CASE EVENT DATE: 20171016
